FAERS Safety Report 9233438 (Version 1)
Quarter: 2013Q2

REPORT INFORMATION
  Report Type: Spontaneous
  Country: US (occurrence: US)
  Receive Date: 20130416
  Receipt Date: 20130416
  Transmission Date: 20140414
  Serious: No
  Sender: FDA-Public Use
  Company Number: US-BANPHARM-20131074

PATIENT
  Age: 68 Year
  Sex: Male
  Weight: 63.5 kg

DRUGS (1)
  1. ALEVE LIQUID GELS 220MG [Suspect]
     Dosage: 1 DF,
     Route: 048
     Dates: start: 20120712

REACTIONS (3)
  - Product taste abnormal [Not Recovered/Not Resolved]
  - Abdominal discomfort [Not Recovered/Not Resolved]
  - Drug effect incomplete [Unknown]
